FAERS Safety Report 9437251 (Version 1)
Quarter: 2013Q3

REPORT INFORMATION
  Report Type: Report from Study
  Country: BR (occurrence: BR)
  Receive Date: 20130802
  Receipt Date: 20130802
  Transmission Date: 20140515
  Serious: Yes (Other)
  Sender: FDA-Public Use
  Company Number: PHHY2013BR082065

PATIENT
  Sex: Female
  Weight: 83 kg

DRUGS (4)
  1. GILENYA [Suspect]
     Indication: MULTIPLE SCLEROSIS
     Dosage: 0.5 MG, QD
     Route: 048
     Dates: start: 20130726
  2. OMEPRAZOLE [Concomitant]
  3. BROMOPRIDE [Concomitant]
  4. MINESSE [Concomitant]
     Indication: CONTRACEPTION

REACTIONS (3)
  - Tachycardia [Not Recovered/Not Resolved]
  - Malaise [Unknown]
  - Blood pressure increased [Not Recovered/Not Resolved]
